FAERS Safety Report 4433577-0 (Version None)
Quarter: 2004Q3

REPORT INFORMATION
  Report Type: 
  Country: None (occurrence: None)
  Receive Date: 20040824
  Receipt Date: 20040810
  Transmission Date: 20050211
  Serious: Yes (Life-Threatening)
  Sender: FDA-Public Use
  Company Number: 04H-163-0270837-00

PATIENT
  Age: 64 Year
  Sex: Male

DRUGS (5)
  1. HEPARIN SODIUM [Suspect]
     Indication: THROMBOLYSIS
  2. ACTIVASE [Suspect]
     Indication: THROMBOLYSIS
  3. ACETYLSALICYLIC ACID SRT [Suspect]
     Indication: THROMBOLYSIS
  4. SUPPLEMENTAL OXYGEN [Concomitant]
  5. ANTIBIOTICS [Concomitant]

REACTIONS (6)
  - HAEMOGLOBIN DECREASED [None]
  - HAEMOPTYSIS [None]
  - HYPOXIA [None]
  - LUNG INFILTRATION [None]
  - PULMONARY HAEMORRHAGE [None]
  - THROMBOCYTHAEMIA [None]
